FAERS Safety Report 7508327-1 (Version None)
Quarter: 2011Q2

REPORT INFORMATION
  Report Type: 
  Country: None (occurrence: None)
  Receive Date: 20110527
  Receipt Date: 20110518
  Transmission Date: 20111010
  Serious: Yes (Other)
  Sender: FDA-Public Use
  Company Number: US-AMGEN-USASP2011025775

PATIENT
  Sex: Male

DRUGS (2)
  1. ENBREL [Suspect]
     Indication: PSORIATIC ARTHROPATHY
     Dosage: 50 MG, 2 TIMES/WK
     Dates: start: 20101231
  2. ENBREL [Suspect]
     Indication: PSORIASIS

REACTIONS (7)
  - LYMPH NODE PAIN [None]
  - LARYNGITIS [None]
  - TOOTH EXTRACTION [None]
  - OROPHARYNGEAL PAIN [None]
  - PSORIASIS [None]
  - LYMPHADENOPATHY [None]
  - INSOMNIA [None]
